FAERS Safety Report 23100461 (Version 1)
Quarter: 2023Q4

REPORT INFORMATION
  Report Type: Spontaneous
  Country: TR (occurrence: TR)
  Receive Date: 20231024
  Receipt Date: 20231024
  Transmission Date: 20240109
  Serious: Yes (Other)
  Sender: FDA-Public Use
  Company Number: TR-BAYER-2023A148794

PATIENT
  Age: 53 Year
  Sex: Female

DRUGS (2)
  1. XARELTO [Suspect]
     Active Substance: RIVAROXABAN
     Indication: Product used for unknown indication
     Dosage: 20 MG
     Route: 048
  2. ELIQUIS [Concomitant]
     Active Substance: APIXABAN
     Dosage: 5 MG

REACTIONS (3)
  - Hypertension [Unknown]
  - Pruritus [Unknown]
  - Headache [Unknown]
